FAERS Safety Report 21587633 (Version 1)
Quarter: 2022Q4

REPORT INFORMATION
  Report Type: Report from Study
  Country: US (occurrence: US)
  Receive Date: 20221114
  Receipt Date: 20221114
  Transmission Date: 20230112
  Serious: No
  Sender: FDA-Public Use
  Company Number: US-ABBVIE-4161887

PATIENT
  Sex: Female

DRUGS (1)
  1. ORILISSA [Suspect]
     Active Substance: ELAGOLIX SODIUM
     Indication: Endometriosis
     Dosage: START DATE TEXT: 6 MONTHS AGO?STOP DATE TEXT: ONGOING?FREQUENCY TEXT: 1 TABLET TWICE A DAY?FORM S...
     Route: 048

REACTIONS (3)
  - Endometriosis [Recovered/Resolved]
  - Stress [Unknown]
  - Dysmenorrhoea [Recovered/Resolved]
